FAERS Safety Report 21928195 (Version 1)
Quarter: 2023Q1

REPORT INFORMATION
  Report Type: Spontaneous
  Country: US (occurrence: US)
  Receive Date: 20230130
  Receipt Date: 20230130
  Transmission Date: 20230418
  Serious: No
  Sender: FDA-Public Use
  Company Number: US-Covis Pharma GmbH-2023COV00028

PATIENT
  Age: 66 Year
  Sex: Female

DRUGS (1)
  1. ALVESCO [Suspect]
     Active Substance: CICLESONIDE
     Indication: Asthma
     Dates: start: 20210101

REACTIONS (5)
  - Pharyngitis [Unknown]
  - Cough [Unknown]
  - Wheezing [Unknown]
  - Bronchospasm [Unknown]
  - Product dose omission issue [Unknown]
